FAERS Safety Report 17119589 (Version 1)
Quarter: 2019Q4

REPORT INFORMATION
  Report Type: Spontaneous
  Country: ES (occurrence: ES)
  Receive Date: 20191206
  Receipt Date: 20191206
  Transmission Date: 20200122
  Serious: Yes (Life-Threatening, Hospitalization)
  Sender: FDA-Public Use
  Company Number: ES-TEVA-2019-ES-1147495

PATIENT
  Age: 59 Year
  Sex: Male

DRUGS (6)
  1. CEFUROXIMA (828A) [Concomitant]
     Active Substance: CEFUROXIME
     Indication: ANTIBIOTIC PROPHYLAXIS
     Dosage: 750MG EVERY 8 HOURS
     Route: 042
     Dates: start: 20190930, end: 20191001
  2. ENOXAPARINA SODICA (2482SO) [Suspect]
     Active Substance: ENOXAPARIN SODIUM
     Indication: HEART VALVE OPERATION
     Dosage: 20MG EVERY 12 HOURS
     Route: 058
     Dates: start: 20191002, end: 20191004
  3. TRAMADOL HIDROCLORURO (2389CH) [Concomitant]
     Active Substance: TRAMADOL
     Dosage: 500MG EVERY 8 HOURS
     Route: 042
     Dates: start: 20191001, end: 20191004
  4. LINEZOLID (1279A) [Suspect]
     Active Substance: LINEZOLID
     Dosage: 600MG EVERY 12 HOURS
     Route: 042
     Dates: start: 20191003, end: 20191007
  5. ENOXAPARINA SODICA (2482SO) [Suspect]
     Active Substance: ENOXAPARIN SODIUM
     Route: 058
     Dates: start: 20191001, end: 20191002
  6. METAMIZOL (111A) [Suspect]
     Active Substance: METAMIZOL SODIUM
     Indication: HEART VALVE OPERATION
     Dosage: 1 GRAM EVERY 8 HOURS
     Route: 042
     Dates: start: 20190930, end: 20191004

REACTIONS (1)
  - Thrombocytopenia [Recovered/Resolved]

NARRATIVE: CASE EVENT DATE: 20191003
